FAERS Safety Report 12232700 (Version 1)
Quarter: 2016Q2

REPORT INFORMATION
  Report Type: Spontaneous
  Country: FR (occurrence: FR)
  Receive Date: 20160401
  Receipt Date: 20160401
  Transmission Date: 20160815
  Serious: Yes (Hospitalization)
  Sender: FDA-Public Use
  Company Number: FR-PFIZER INC-2016183079

PATIENT
  Age: 28 Year
  Sex: Male
  Weight: 80 kg

DRUGS (7)
  1. SERTRALINE HCL [Suspect]
     Active Substance: SERTRALINE HYDROCHLORIDE
     Dosage: UNK, SINGLE
     Route: 048
     Dates: start: 20160314, end: 20160314
  2. SERTRALINE HCL [Suspect]
     Active Substance: SERTRALINE HYDROCHLORIDE
     Dosage: UNK
     Route: 048
  3. ZOPICLONE [Suspect]
     Active Substance: ZOPICLONE
     Dosage: 2 BOXES, SINGLE
     Route: 048
     Dates: start: 20160314, end: 20160314
  4. LOXAPAC [Suspect]
     Active Substance: LOXAPINE SUCCINATE
     Dosage: UNK, SINGLE
     Route: 048
     Dates: start: 20160314, end: 20160314
  5. XANAX [Suspect]
     Active Substance: ALPRAZOLAM
     Dosage: 3 DF, DAILY
     Route: 048
  6. XANAX [Suspect]
     Active Substance: ALPRAZOLAM
     Dosage: 5 BOXES, SINGLE
     Route: 048
     Dates: start: 20160314, end: 20160314
  7. ZOPICLONE [Suspect]
     Active Substance: ZOPICLONE
     Dosage: 1 DF, DAILY
     Route: 048

REACTIONS (4)
  - Lung disorder [Recovered/Resolved]
  - Coma [Recovered/Resolved]
  - Suicide attempt [Recovered/Resolved]
  - Toxicity to various agents [Recovered/Resolved]

NARRATIVE: CASE EVENT DATE: 20160314
